FAERS Safety Report 8082929-9 (Version None)
Quarter: 2012Q1

REPORT INFORMATION
  Report Type: 
  Country: None (occurrence: None)
  Receive Date: 20120127
  Receipt Date: 20110307
  Transmission Date: 20120608
  Serious: No
  Sender: FDA-Public Use
  Company Number: US-ABBOTT-11P-163-0710103-00

PATIENT
  Sex: Male
  Weight: 131.21 kg

DRUGS (9)
  1. CALCITRIOL [Concomitant]
     Indication: PRODUCT USED FOR UNKNOWN INDICATION
  2. FUROSEMIDE [Concomitant]
     Indication: PRODUCT USED FOR UNKNOWN INDICATION
  3. GLIPIZIDE [Concomitant]
     Indication: DIABETES MELLITUS
  4. LEVOTHYROXINE SODIUM [Concomitant]
     Indication: THYROID DISORDER
  5. LOVASTATIN [Concomitant]
     Indication: BLOOD CHOLESTEROL INCREASED
  6. HUMIRA [Suspect]
     Indication: PSORIASIS
     Dates: start: 20101201
  7. METOPROLOL TARTRATE [Concomitant]
     Indication: CARDIAC DISORDER
  8. ALLOPURINOL [Concomitant]
     Indication: GOUT
  9. TAMSULOSIN HCL [Concomitant]
     Indication: PRODUCT USED FOR UNKNOWN INDICATION

REACTIONS (4)
  - INJURY ASSOCIATED WITH DEVICE [None]
  - INCORRECT ROUTE OF DRUG ADMINISTRATION [None]
  - PAIN IN EXTREMITY [None]
  - WRONG TECHNIQUE IN DRUG USAGE PROCESS [None]
